FAERS Safety Report 23315469 (Version 1)
Quarter: 2023Q4

REPORT INFORMATION
  Report Type: Report from Study
  Country: CA (occurrence: None)
  Receive Date: 20231219
  Receipt Date: 20231219
  Transmission Date: 20240109
  Serious: Yes (Death, Other)
  Sender: FDA-Public Use
  Company Number: 2023A287463

PATIENT
  Sex: Female

DRUGS (11)
  1. TAGRISSO [Suspect]
     Active Substance: OSIMERTINIB
     Indication: Non-small cell lung cancer metastatic
     Route: 048
     Dates: start: 20230504
  2. DEXAMETHASONE [Concomitant]
     Active Substance: DEXAMETHASONE
  3. APIXABAN [Concomitant]
     Active Substance: APIXABAN
  4. LEVOMEPROMAZINE MALEATE [Concomitant]
     Active Substance: LEVOMEPROMAZINE MALEATE
  5. MIRTAZAPINE [Concomitant]
     Active Substance: MIRTAZAPINE
  6. MORPHINE [Concomitant]
     Active Substance: MORPHINE
  7. OMEGA 3 [Concomitant]
     Active Substance: CAPSAICIN
  8. PANTOPRAZOLE [Concomitant]
     Active Substance: PANTOPRAZOLE
  9. VITAMIN D [Concomitant]
     Active Substance: VITAMIN D NOS
  10. ZOPICLONE [Concomitant]
     Active Substance: ZOPICLONE
  11. CITALOPRAM [Concomitant]
     Active Substance: CITALOPRAM HYDROBROMIDE

REACTIONS (1)
  - Death [Fatal]
